FAERS Safety Report 8018272-3 (Version None)
Quarter: 2011Q4

REPORT INFORMATION
  Report Type: 
  Country: None (occurrence: None)
  Receive Date: 20111227
  Receipt Date: 20111213
  Transmission Date: 20120403
  Serious: Yes (Death)
  Sender: FDA-Public Use
  Company Number: UTC-012712

PATIENT
  Age: 73 Year
  Sex: Female

DRUGS (2)
  1. DIURETICS (DUIRETICS) [Concomitant]
  2. REMODULIN [Suspect]
     Indication: PULMONARY ARTERIAL HYPERTENSION
     Dosage: 194.4 UG/KG (0.135 UG/KG, 1 IN 1 MIN), INTRAVENOUS
     Route: 042
     Dates: start: 20100219

REACTIONS (1)
  - DEATH [None]
